FAERS Safety Report 18013913 (Version 2)
Quarter: 2020Q3

REPORT INFORMATION
  Report Type: Report from Study
  Country: GB (occurrence: GB)
  Receive Date: 20200713
  Receipt Date: 20200714
  Transmission Date: 20201104
  Serious: Yes (Hospitalization)
  Sender: FDA-Public Use
  Company Number: GB-BIOVITRUM-NOVI-000238

PATIENT
  Age: 7 Month
  Sex: Male
  Weight: 8 kg

DRUGS (27)
  1. EMAPALUMAB. [Suspect]
     Active Substance: EMAPALUMAB
     Dosage: 10 MG/KG (5 INFUSIONS)
     Route: 042
     Dates: start: 20191101, end: 20191115
  2. PHENOXYMETHYL PENICILLIN [Concomitant]
     Active Substance: PENICILLIN V
     Indication: PROPHYLAXIS
     Dosage: UNK
     Dates: start: 20191211
  3. EMAPALUMAB. [Suspect]
     Active Substance: EMAPALUMAB
     Dosage: 6 MG/KG (6 INFUSIONS)
     Route: 042
     Dates: start: 20191011, end: 20191029
  4. COTRIMOXAZOLE [Concomitant]
     Active Substance: SULFAMETHOXAZOLE\TRIMETHOPRIM
     Indication: PROPHYLAXIS
     Dosage: UNK
     Dates: start: 20191214
  5. RIFAMPICIN [Concomitant]
     Active Substance: RIFAMPIN
     Indication: LYMPHADENITIS
     Dosage: UNK
     Dates: start: 20200127, end: 202004
  6. PARACETAMOL [Concomitant]
     Active Substance: ACETAMINOPHEN
     Indication: PROPHYLAXIS
  7. EMAPALUMAB. [Suspect]
     Active Substance: EMAPALUMAB
     Indication: FAMILIAL HAEMOPHAGOCYTIC LYMPHOHISTIOCYTOSIS
     Dosage: 3 MG/KG (16 INFUSIONS)
     Route: 042
     Dates: start: 20190816, end: 20191008
  8. ACICLOVIR [Concomitant]
     Active Substance: ACYCLOVIR
     Indication: PROPHYLAXIS
     Dosage: UNK
     Dates: start: 20191228
  9. DOMPERIDONE [Concomitant]
     Active Substance: DOMPERIDONE
     Indication: LYMPHADENITIS
     Dosage: UNK
     Dates: start: 20200112
  10. MONTELUKAST [Concomitant]
     Active Substance: MONTELUKAST SODIUM
     Indication: LYMPHADENITIS
     Dosage: UNK
     Dates: start: 20200106, end: 20200209
  11. AMILORIDE [Concomitant]
     Active Substance: AMILORIDE
     Indication: PRODUCT USED FOR UNKNOWN INDICATION
     Dosage: UNK
     Dates: start: 20200214
  12. PIPERACILLIN AND TAZOBACTAM [Concomitant]
     Active Substance: PIPERACILLIN SODIUM\TAZOBACTAM SODIUM
     Indication: LYMPHADENITIS
     Dosage: UNK
     Dates: start: 20200204, end: 20200217
  13. CICLOSPORIN [Concomitant]
     Active Substance: CYCLOSPORINE
     Indication: LYMPHADENITIS
     Dosage: UNK
     Dates: start: 20191211, end: 20200315
  14. PREDNISOLONE. [Concomitant]
     Active Substance: PREDNISOLONE
     Indication: SUPPLEMENTATION THERAPY
  15. MOXIFLOXACIN. [Concomitant]
     Active Substance: MOXIFLOXACIN
     Indication: LYMPHADENITIS
     Dosage: UNK
     Dates: start: 20200214, end: 20200316
  16. LENOGRASTIM [Concomitant]
     Active Substance: LENOGRASTIM
     Indication: SUPPLEMENTATION THERAPY
     Dosage: UNK
     Dates: start: 20200309, end: 202004
  17. PARACETAMOL [Concomitant]
     Active Substance: ACETAMINOPHEN
     Indication: PRODUCT USED FOR UNKNOWN INDICATION
  18. MYCOPHENOLATE MOFETIL. [Concomitant]
     Active Substance: MYCOPHENOLATE MOFETIL
     Indication: PROPHYLAXIS
     Dosage: UNK
     Dates: start: 20200115, end: 20200216
  19. PYRIDOXINE [Concomitant]
     Active Substance: PYRIDOXINE
     Indication: PROPHYLAXIS
     Dosage: UNK
     Dates: start: 20200130, end: 202004
  20. ITRACONAZOLE. [Concomitant]
     Active Substance: ITRACONAZOLE
     Indication: PROPHYLAXIS
     Dosage: UNK
     Dates: start: 20200219, end: 20200312
  21. PARACETAMOL [Concomitant]
     Active Substance: ACETAMINOPHEN
     Indication: LYMPHADENITIS
     Dosage: UNK
     Dates: start: 20190827
  22. OMEPRAZOLE. [Concomitant]
     Active Substance: OMEPRAZOLE
     Indication: PROPHYLAXIS
     Dosage: UNK
     Dates: start: 20200115
  23. ISONIAZID. [Concomitant]
     Active Substance: ISONIAZID
     Indication: LYMPHADENITIS
     Dosage: UNK
     Dates: start: 20200127, end: 202004
  24. TEICOPLANIN [Concomitant]
     Active Substance: TEICOPLANIN
     Indication: LYMPHADENITIS
     Dosage: UNK
     Dates: start: 20200216, end: 20200219
  25. PREDNISOLONE. [Concomitant]
     Active Substance: PREDNISOLONE
     Indication: LYMPHADENITIS
     Dosage: UNK
     Dates: start: 20200110, end: 20200511
  26. LOPERAMIDE [Concomitant]
     Active Substance: LOPERAMIDE
     Indication: LYMPHADENITIS
     Dosage: UNK
     Dates: start: 20200120
  27. ETHAMBUTOL [Concomitant]
     Active Substance: ETHAMBUTOL HYDROCHLORIDE
     Indication: LYMPHADENITIS
     Dosage: UNK
     Dates: start: 20200214, end: 20200316

REACTIONS (1)
  - Lymphadenitis [Recovered/Resolved]

NARRATIVE: CASE EVENT DATE: 20191108
